FAERS Safety Report 5679957-7 (Version None)
Quarter: 2008Q1

REPORT INFORMATION
  Report Type: 
  Country: None (occurrence: None)
  Receive Date: 20080324
  Receipt Date: 20080311
  Transmission Date: 20080703
  Serious: Yes (Other)
  Sender: FDA-Public Use
  Company Number: GXKR2008GB02591

PATIENT
  Age: 50 Year
  Sex: Male
  Weight: 103.9 kg

DRUGS (1)
  1. OMEPRAZOLE [Suspect]
     Indication: HIATUS HERNIA
     Dosage: 40 MG, ORAL
     Route: 048
     Dates: start: 20080201, end: 20080207

REACTIONS (3)
  - DIZZINESS [None]
  - DYSPNOEA [None]
  - PALPITATIONS [None]
